FAERS Safety Report 23559285 (Version 1)
Quarter: 2024Q1

REPORT INFORMATION
  Report Type: Spontaneous
  Country: US (occurrence: None)
  Receive Date: 20240222
  Receipt Date: 20240222
  Transmission Date: 20240410
  Serious: Yes (Hospitalization)
  Sender: FDA-Public Use
  Company Number: None

PATIENT
  Age: 76 Year
  Sex: Female
  Weight: 131 kg

DRUGS (1)
  1. CEFAZOLIN SODIUM [Suspect]
     Active Substance: CEFAZOLIN SODIUM
     Dosage: 500 MG ONCE INTRAVENOUS BOLUS ?
     Route: 040
     Dates: start: 20240220, end: 20240220

REACTIONS (3)
  - Agonal respiration [None]
  - Unresponsive to stimuli [None]
  - Cyanosis [None]

NARRATIVE: CASE EVENT DATE: 20240220
